FAERS Safety Report 25647545 (Version 2)
Quarter: 2025Q3

REPORT INFORMATION
  Report Type: Spontaneous
  Country: US (occurrence: US)
  Receive Date: 20250806
  Receipt Date: 20250910
  Transmission Date: 20251020
  Serious: Yes (Other)
  Sender: NOVO NORDISK
  Company Number: US-NOVOPROD-1488520

PATIENT
  Age: 53 Year
  Sex: Female

DRUGS (1)
  1. WEGOVY [Suspect]
     Active Substance: SEMAGLUTIDE
     Indication: Weight control
     Dosage: 2.4 MG, QW
     Dates: end: 20250719

REACTIONS (6)
  - Cervical spinal stenosis [Unknown]
  - Crohn^s disease [Unknown]
  - Allodynia [Not Recovered/Not Resolved]
  - Exposure to communicable disease [Unknown]
  - Generalised anxiety disorder [Unknown]
  - Fatigue [Unknown]

NARRATIVE: CASE EVENT DATE: 20250722
